FAERS Safety Report 6898185-0 (Version None)
Quarter: 2010Q3

REPORT INFORMATION
  Report Type: 
  Country: None (occurrence: None)
  Receive Date: 20100802
  Receipt Date: 20070919
  Transmission Date: 20110219
  Serious: No
  Sender: FDA-Public Use
  Company Number: US-PFIZER INC-2007072743

PATIENT
  Sex: Male
  Weight: 56.2 kg

DRUGS (1)
  1. LYRICA [Suspect]
     Indication: PANIC ATTACK
     Route: 048
     Dates: start: 20070808

REACTIONS (1)
  - DRUG INEFFECTIVE [None]
